FAERS Safety Report 17204742 (Version 11)
Quarter: 2020Q3

REPORT INFORMATION
  Report Type: Report from Study
  Country: CO (occurrence: CO)
  Receive Date: 20191226
  Receipt Date: 20200813
  Transmission Date: 20201102
  Serious: Yes (Hospitalization, Disabling, Other)
  Sender: FDA-Public Use
  Company Number: CO-AMGEN-COLSL2019213655

PATIENT
  Age: 75 Year
  Sex: Female

DRUGS (6)
  1. NPLATE [Suspect]
     Active Substance: ROMIPLOSTIM
     Dosage: 70 MICROGRAM, QWK
     Route: 058
     Dates: end: 20200114
  2. NPLATE [Suspect]
     Active Substance: ROMIPLOSTIM
     Dosage: 70 MICROGRAM, QWK
     Route: 058
     Dates: start: 20200207
  3. NPLATE [Suspect]
     Active Substance: ROMIPLOSTIM
     Indication: IMMUNE THROMBOCYTOPENIA
     Dosage: 250 MICROGRAM, QWK
     Route: 058
     Dates: start: 20191115
  4. NPLATE [Suspect]
     Active Substance: ROMIPLOSTIM
     Dosage: 250 MICROGRAM, QWK
     Route: 065
  5. NPLATE [Suspect]
     Active Substance: ROMIPLOSTIM
     Dosage: 50 MICROGRAM, QWK
     Route: 058
  6. NPLATE [Suspect]
     Active Substance: ROMIPLOSTIM
     Dosage: 70 MICROGRAM, QWK
     Route: 058
     Dates: start: 20191115

REACTIONS (4)
  - Back pain [Recovering/Resolving]
  - Thrombocytopenia [Recovered/Resolved]
  - Off label use [Not Recovered/Not Resolved]
  - Thrombocytosis [Recovered/Resolved]

NARRATIVE: CASE EVENT DATE: 20191216
